FAERS Safety Report 9042492 (Version 1)
Quarter: 2013Q1

REPORT INFORMATION
  Report Type: Report from Study
  Country: US (occurrence: US)
  Receive Date: 20130129
  Receipt Date: 20130129
  Transmission Date: 20140127
  Serious: No
  Sender: FDA-Public Use
  Company Number: US-ABBOTT-12P-163-0908041-00

PATIENT
  Age: 17 Year
  Sex: Female

DRUGS (6)
  1. HUMIRA 40 MG/0.8 ML PEN [Suspect]
     Indication: CROHN^S DISEASE
  2. HUMIRA 40 MG/0.8 ML PEN [Suspect]
     Dates: start: 201109
  3. PROBIOTIC [Concomitant]
     Indication: PRODUCT USED FOR UNKNOWN INDICATION
     Dosage: DAILY
  4. ZYRTEC [Concomitant]
     Indication: HYPERSENSITIVITY
  5. MULTIVITAMIN [Concomitant]
     Indication: PRODUCT USED FOR UNKNOWN INDICATION
  6. IRON [Concomitant]
     Indication: SUPPLEMENTATION THERAPY

REACTIONS (6)
  - Injection site pain [Recovering/Resolving]
  - Injection site pain [Recovering/Resolving]
  - Injection site bruising [Recovering/Resolving]
  - Chest pain [Unknown]
  - Cardiovascular disorder [Unknown]
  - Drug ineffective [Recovering/Resolving]
